FAERS Safety Report 10064698 (Version 1)
Quarter: 2014Q1

REPORT INFORMATION
  Report Type: Spontaneous
  Country: US (occurrence: None)
  Receive Date: 20140328
  Receipt Date: 20140328
  Transmission Date: 20141002
  Serious: No
  Sender: FDA-Public Use
  Company Number: 1000053066

PATIENT
  Sex: Female

DRUGS (3)
  1. LINZESS (LINACLOTIDE) (145 MICROGRAM, CAPSULES) [Suspect]
     Indication: CONSTIPATION
  2. LINZESS (LINACLOTIDE) [Suspect]
     Indication: CONSTIPATION
  3. MIRALAX [Suspect]

REACTIONS (3)
  - Diarrhoea [None]
  - Intentional drug misuse [None]
  - Drug ineffective [None]
